APPROVED DRUG PRODUCT: PHENTERMINE HYDROCHLORIDE
Active Ingredient: PHENTERMINE HYDROCHLORIDE
Strength: 30MG
Dosage Form/Route: CAPSULE;ORAL
Application: A204318 | Product #002 | TE Code: AA
Applicant: AUROLIFE PHARMA LLC
Approved: Nov 9, 2016 | RLD: No | RS: No | Type: RX